FAERS Safety Report 18611375 (Version 1)
Quarter: 2020Q4

REPORT INFORMATION
  Report Type: Spontaneous
  Country: US (occurrence: US)
  Receive Date: 20201214
  Receipt Date: 20201214
  Transmission Date: 20210114
  Serious: No
  Sender: FDA-Public Use
  Company Number: US-PFIZER INC-2020490439

PATIENT
  Age: 48 Year
  Sex: Male
  Weight: 83.91 kg

DRUGS (2)
  1. LYRICA [Suspect]
     Active Substance: PREGABALIN
     Indication: INJURY
     Dosage: 150 MG, ONCE A DAY (TAPERING OFF)
     Dates: end: 20201206
  2. LYRICA [Suspect]
     Active Substance: PREGABALIN
     Indication: INTERVERTEBRAL DISC PROTRUSION
     Dosage: 150 MG, TWICE A DAY
     Route: 048
     Dates: start: 202008

REACTIONS (4)
  - Disturbance in attention [Not Recovered/Not Resolved]
  - Irritability [Not Recovered/Not Resolved]
  - Thinking abnormal [Not Recovered/Not Resolved]
  - Withdrawal syndrome [Not Recovered/Not Resolved]

NARRATIVE: CASE EVENT DATE: 2020
